FAERS Safety Report 19010643 (Version 1)
Quarter: 2021Q1

REPORT INFORMATION
  Report Type: Spontaneous
  Country: US (occurrence: US)
  Receive Date: 20210315
  Receipt Date: 20210315
  Transmission Date: 20210420
  Serious: No
  Sender: FDA-Public Use
  Company Number: US-PFIZER INC-2021170520

PATIENT
  Age: 59 Year
  Sex: Female
  Weight: 104.3 kg

DRUGS (1)
  1. IBRANCE [Suspect]
     Active Substance: PALBOCICLIB
     Indication: BREAST CANCER FEMALE
     Dosage: 125 MG, CYCLIC(1 DAILY FOR 21 DAYS)
     Route: 048
     Dates: start: 202101

REACTIONS (5)
  - Dry skin [Unknown]
  - Feeling abnormal [Unknown]
  - Alopecia [Unknown]
  - Pruritus [Unknown]
  - Dizziness [Unknown]
